FAERS Safety Report 6753440-X (Version None)
Quarter: 2010Q2

REPORT INFORMATION
  Report Type: 
  Country: None (occurrence: None)
  Receive Date: 20100603
  Receipt Date: 20091210
  Transmission Date: 20101027
  Serious: Yes (Other)
  Sender: FDA-Public Use
  Company Number: TR-SANOFI-AVENTIS-2009SA008475

PATIENT
  Age: 12 Year
  Sex: Female

DRUGS (4)
  1. RIFAMPICIN [Suspect]
     Indication: TUBERCULOSIS
  2. ISONIAZID [Suspect]
     Indication: TUBERCULOSIS
  3. PYRAZINAMIDE [Suspect]
     Indication: TUBERCULOSIS
  4. ETHAMBUTOL HYDROCHLORIDE [Suspect]
     Indication: TUBERCULOSIS

REACTIONS (1)
  - DRUG RASH WITH EOSINOPHILIA AND SYSTEMIC SYMPTOMS [None]
